FAERS Safety Report 4386165-9 (Version None)
Quarter: 2004Q2

REPORT INFORMATION
  Report Type: 
  Country: None (occurrence: None)
  Receive Date: 20040629
  Receipt Date: 20040623
  Transmission Date: 20050107
  Serious: Yes (Death)
  Sender: FDA-Public Use
  Company Number: PHEH2004US06811

PATIENT
  Age: 92 Year
  Sex: Female

DRUGS (1)
  1. CLOZARIL [Suspect]
     Indication: DEMENTIA
     Dosage: 25 MG, BID
     Route: 048
     Dates: start: 20040330

REACTIONS (2)
  - CARDIAC FAILURE CONGESTIVE [None]
  - CORONARY ARTERY ATHEROSCLEROSIS [None]
